FAERS Safety Report 6635675-X (Version None)
Quarter: 2010Q1

REPORT INFORMATION
  Report Type: 
  Country: None (occurrence: None)
  Receive Date: 20100312
  Receipt Date: 20100312
  Transmission Date: 20100710
  Serious: Yes (Other)
  Sender: FDA-Public Use
  Company Number: None

PATIENT
  Sex: Female
  Weight: 53.5244 kg

DRUGS (2)
  1. CYCLOBENAZPRINE [Suspect]
     Indication: MUSCULOSKELETAL STIFFNESS
     Dosage: 1 TABLET AT BEDTIME PO
     Route: 048
     Dates: start: 20100303, end: 20100304
  2. CYCLOBENAZPRINE [Suspect]
     Indication: NECK PAIN
     Dosage: 1 TABLET AT BEDTIME PO
     Route: 048
     Dates: start: 20100303, end: 20100304

REACTIONS (3)
  - LIP SWELLING [None]
  - PRURITUS [None]
  - SWELLING FACE [None]
